FAERS Safety Report 6947208-9 (Version None)
Quarter: 2010Q3

REPORT INFORMATION
  Report Type: 
  Country: None (occurrence: None)
  Receive Date: 20100825
  Receipt Date: 20100806
  Transmission Date: 20110219
  Serious: Yes (Other)
  Sender: FDA-Public Use
  Company Number: 017231

PATIENT
  Age: 63 Year
  Sex: Female

DRUGS (4)
  1. KEPPRA [Suspect]
     Indication: EPILEPSY
     Dosage: (500 MG BID),(500 MG QD), (3000 MG)
  2. CARBAMAZEPINE [Concomitant]
  3. VALPROIC ACID [Concomitant]
  4. PREGABALIN [Concomitant]

REACTIONS (5)
  - CONDITION AGGRAVATED [None]
  - CONVULSION [None]
  - MENINGIOMA [None]
  - NO THERAPEUTIC RESPONSE [None]
  - UNEVALUABLE EVENT [None]
